FAERS Safety Report 8216814-6 (Version None)
Quarter: 2012Q1

REPORT INFORMATION
  Report Type: 
  Country: None (occurrence: None)
  Receive Date: 20120316
  Receipt Date: 20120313
  Transmission Date: 20120608
  Serious: Yes (Other)
  Sender: FDA-Public Use
  Company Number: US-MERCK-1202USA02548

PATIENT
  Age: 88 Year
  Sex: Female
  Weight: 68 kg

DRUGS (5)
  1. ZOCOR [Suspect]
     Indication: BLOOD CHOLESTEROL INCREASED
     Route: 048
     Dates: start: 20111001, end: 20111201
  2. LIPITOR [Suspect]
     Indication: BLOOD CHOLESTEROL INCREASED
     Route: 048
     Dates: start: 20120115, end: 20120117
  3. NAMENDA [Concomitant]
     Indication: MEMORY IMPAIRMENT
     Route: 065
  4. AMLODIPINE [Concomitant]
     Indication: HYPERTENSION
     Route: 065
  5. ARICEPT [Concomitant]
     Indication: MEMORY IMPAIRMENT
     Route: 065

REACTIONS (4)
  - WRONG TECHNIQUE IN DRUG USAGE PROCESS [None]
  - AMNESIA [None]
  - BLINDNESS [None]
  - GENERAL PHYSICAL HEALTH DETERIORATION [None]
